FAERS Safety Report 16891563 (Version 1)
Quarter: 2019Q4

REPORT INFORMATION
  Report Type: Spontaneous
  Country: JP (occurrence: JP)
  Receive Date: 20191007
  Receipt Date: 20191007
  Transmission Date: 20200122
  Serious: Yes (Death, Hospitalization, Other)
  Sender: FDA-Public Use
  Company Number: JP-BRACCO-2019JP04372

PATIENT
  Age: 87 Year
  Sex: Female

DRUGS (11)
  1. NICORANDIL [Concomitant]
     Active Substance: NICORANDIL
     Dosage: 1 DF, TID AFTER EACH MEAL
  2. IOPAMIRON [Suspect]
     Active Substance: IOPAMIDOL
     Indication: SCAN WITH CONTRAST
     Dosage: UNK, SINGLE
     Route: 040
     Dates: start: 20190822, end: 20190822
  3. LYRICA [Concomitant]
     Active Substance: PREGABALIN
     Dosage: 1 DF, BID
  4. APO LANSOPRAZOLE ODT [Concomitant]
     Dosage: 1 DF, OM
  5. BETANIS [Concomitant]
     Active Substance: MIRABEGRON
     Dosage: 1 DF, QD
  6. AMLODIPINE OD TYK [Concomitant]
     Dosage: 1 DF, QD
  7. MOSAPRIDE CITRATE DIHYDRATE [Concomitant]
     Active Substance: MOSAPRIDE CITRATE DIHYDRATE
     Dosage: 1 DF, TID AFTER EACH MEAL
  8. BAYASPIRIN 100 MG [Concomitant]
     Active Substance: ASPIRIN
     Dosage: 1 DF, OM
     Route: 048
  9. OLMETEC ANLO [Concomitant]
     Active Substance: AMLODIPINE BESYLATE\OLMESARTAN MEDOXOMIL
     Dosage: 1 DF, OM
  10. DEPAS [DICLOFENAC;DICYCLOVERINE HYDROCHLORIDE] [Concomitant]
     Dosage: 1 DF, TID, AFTER EACH MEAL
  11. PITAVASTATIN CA [Concomitant]
     Active Substance: PITAVASTATIN CALCIUM
     Dosage: 1 DF, QD

REACTIONS (5)
  - Nephropathy toxic [Recovering/Resolving]
  - Cardiac failure acute [Fatal]
  - Pneumonia [Unknown]
  - Ascites [Unknown]
  - Emphysema [Unknown]

NARRATIVE: CASE EVENT DATE: 20190825
